FAERS Safety Report 7880370-2 (Version None)
Quarter: 2011Q4

REPORT INFORMATION
  Report Type: 
  Country: None (occurrence: None)
  Receive Date: 20111101
  Receipt Date: 20111025
  Transmission Date: 20120403
  Serious: Yes (Other)
  Sender: FDA-Public Use
  Company Number: PHHY2011JP78401

PATIENT
  Age: 72 Year
  Sex: Male

DRUGS (5)
  1. FLUOROURACIL [Concomitant]
     Indication: RECTOSIGMOID CANCER
  2. OXALIPLATIN [Suspect]
     Indication: RECTOSIGMOID CANCER
  3. LEUCOVORIN CALCIUM [Concomitant]
     Indication: RECTOSIGMOID CANCER
  4. IRINOTECAN HCL [Concomitant]
     Indication: RECTOSIGMOID CANCER
  5. BEVACIZUMAB [Concomitant]
     Indication: RECTOSIGMOID CANCER

REACTIONS (2)
  - THROMBOCYTOPENIA [None]
  - SPLENOMEGALY [None]
